FAERS Safety Report 9494286 (Version 1)
Quarter: 2013Q3

REPORT INFORMATION
  Report Type: Spontaneous
  Country: US (occurrence: None)
  Receive Date: 20130828
  Receipt Date: 20130828
  Transmission Date: 20140515
  Serious: Yes (Other)
  Sender: FDA-Public Use
  Company Number: 2013P1018555

PATIENT
  Age: 28 Year
  Sex: Male

DRUGS (2)
  1. SULFAMETHOXAZOLE AND TRIMETHOPRIM [Suspect]
     Indication: PNEUMOCYSTIS JIROVECII PNEUMONIA
  2. UNSPECIFIED STEROIDS [Concomitant]

REACTIONS (5)
  - Documented hypersensitivity to administered drug [None]
  - Inappropriate antidiuretic hormone secretion [None]
  - Hypovolaemia [None]
  - Tachycardia [None]
  - Orthostatic hypotension [None]
